FAERS Safety Report 8313348-5 (Version None)
Quarter: 2012Q2

REPORT INFORMATION
  Report Type: 
  Country: None (occurrence: None)
  Receive Date: 20120426
  Receipt Date: 20120412
  Transmission Date: 20120825
  Serious: Yes (Other)
  Sender: FDA-Public Use
  Company Number: PHHY2012JP029344

PATIENT
  Age: 50 Year
  Sex: Male

DRUGS (2)
  1. PREDNISOLONE [Concomitant]
     Dosage: 1 MG/KG, UNK
  2. CYCLOSPORINE [Suspect]
     Indication: PROPHYLAXIS AGAINST GRAFT VERSUS HOST DISEASE
     Dosage: UNK UKN, UNK

REACTIONS (13)
  - AREFLEXIA [None]
  - ERYTHEMA MULTIFORME [None]
  - NEUROPATHY PERIPHERAL [None]
  - PYREXIA [None]
  - DYSPHONIA [None]
  - ACUTE GRAFT VERSUS HOST DISEASE [None]
  - MUSCULAR WEAKNESS [None]
  - DIARRHOEA [None]
  - CYTOMEGALOVIRUS INFECTION [None]
  - DYSPHAGIA [None]
  - DYSPNOEA [None]
  - SENSORY DISTURBANCE [None]
  - NERVE CONDUCTION STUDIES ABNORMAL [None]
